FAERS Safety Report 17606683 (Version 2)
Quarter: 2020Q3

REPORT INFORMATION
  Report Type: Spontaneous
  Country: KR (occurrence: KR)
  Receive Date: 20200331
  Receipt Date: 20200731
  Transmission Date: 20201102
  Serious: Yes (Other)
  Sender: FDA-Public Use
  Company Number: KR-JNJFOC-20200336680

PATIENT
  Age: 6 Month
  Sex: Female

DRUGS (1)
  1. REMICADE [Suspect]
     Active Substance: INFLIXIMAB
     Indication: KAWASAKI^S DISEASE
     Route: 042

REACTIONS (4)
  - Product use issue [Unknown]
  - Off label use [Unknown]
  - Thrombosis [Unknown]
  - Product use in unapproved indication [Unknown]
